FAERS Safety Report 8864512 (Version 1)
Quarter: 2012Q4

REPORT INFORMATION
  Report Type: 
  Country: US (occurrence: US)
  Receive Date: 20121024
  Receipt Date: 20121024
  Transmission Date: 20130627
  Serious: No
  Sender: FDA-Public Use
  Company Number: US-AMGEN-USASP2011067870

PATIENT
  Age: 78 Year
  Sex: Female
  Weight: 68.03 kg

DRUGS (6)
  1. ENBREL [Suspect]
     Indication: PRODUCT USED FOR UNKNOWN INDICATION
     Dosage: 50 mg, qwk
     Route: 058
  2. CELEBREX [Concomitant]
     Dosage: 100 mg, UNK
  3. NORVASC [Concomitant]
     Dosage: 5 mg, UNK
  4. LIPITOR [Concomitant]
     Dosage: 20 mg, UNK
  5. LEVOTHYROXIN [Concomitant]
     Dosage: 100 UNK, UNK
  6. CLARITIN                           /00413701/ [Concomitant]
     Dosage: 10 mg, UNK

REACTIONS (1)
  - Increased tendency to bruise [Unknown]
